FAERS Safety Report 24085151 (Version 1)
Quarter: 2024Q3

REPORT INFORMATION
  Report Type: Spontaneous
  Country: CN (occurrence: CN)
  Receive Date: 20240712
  Receipt Date: 20240712
  Transmission Date: 20241016
  Serious: Yes (Other)
  Sender: NOVARTIS
  Company Number: CN-002147023-NVSC2024CN143376

PATIENT
  Sex: Female

DRUGS (5)
  1. PAZOPANIB [Suspect]
     Active Substance: PAZOPANIB
     Indication: Epithelioid sarcoma
     Dosage: UNK
     Route: 065
  2. CABOZANTINIB [Suspect]
     Active Substance: CABOZANTINIB
     Indication: Epithelioid sarcoma
     Dosage: UNK
     Route: 065
  3. LENVATINIB [Suspect]
     Active Substance: LENVATINIB
     Indication: Epithelioid sarcoma
     Dosage: UNK
     Route: 065
  4. ADRIAMYCIN [Suspect]
     Active Substance: DOXORUBICIN HYDROCHLORIDE
     Indication: Epithelioid sarcoma
     Dosage: AS A PART OF AI CHEMOTHERAPY
     Route: 065
  5. IFOSFAMIDE [Suspect]
     Active Substance: IFOSFAMIDE
     Indication: Epithelioid sarcoma
     Dosage: AS A PART OF AI CHEMOTHERAPY
     Route: 065

REACTIONS (5)
  - Epithelioid sarcoma [Unknown]
  - Malignant neoplasm progression [Unknown]
  - Tumour rupture [Recovered/Resolved]
  - Soft tissue necrosis [Recovered/Resolved]
  - Bladder perforation [Unknown]
